FAERS Safety Report 6981623-2 (Version None)
Quarter: 2010Q3

REPORT INFORMATION
  Report Type: 
  Country: None (occurrence: None)
  Receive Date: 20100914
  Receipt Date: 20090820
  Transmission Date: 20110219
  Serious: No
  Sender: FDA-Public Use
  Company Number: US-PFIZER INC-2009258308

PATIENT
  Age: 84 Year
  Sex: Female

DRUGS (4)
  1. LYRICA [Suspect]
     Indication: PALMAR-PLANTAR ERYTHRODYSAESTHESIA SYNDROME
     Dosage: 50 MG, UNK
  2. GABAPENTIN [Suspect]
     Indication: PALMAR-PLANTAR ERYTHRODYSAESTHESIA SYNDROME
     Dosage: 100 MG, 2X/DAY
  3. OXALIPLATIN [Suspect]
     Dosage: UNK
     Dates: start: 20080626, end: 20081201
  4. XELODA [Suspect]
     Dosage: UNK
     Dates: start: 20080626

REACTIONS (1)
  - PAIN IN EXTREMITY [None]
